FAERS Safety Report 11637410 (Version 1)
Quarter: 2015Q4

REPORT INFORMATION
  Report Type: Report from Study
  Country: US (occurrence: US)
  Receive Date: 20151016
  Receipt Date: 20151016
  Transmission Date: 20160304
  Serious: Yes (Hospitalization)
  Sender: FDA-Public Use
  Company Number: US-ROCHE-1645214

PATIENT
  Age: 63 Year
  Sex: Female
  Weight: 74.8 kg

DRUGS (6)
  1. PERTUZUMAB [Suspect]
     Active Substance: PERTUZUMAB
     Dosage: CYCLE 2-6, MAINTAINANCE DOSE: 420MG IV OVER 30-60 MIN ON DAY 1 Q3 WEEKS?LAST ADMINISTERED DATE: 23/J
     Route: 042
  2. TRASTUZUMAB [Suspect]
     Active Substance: TRASTUZUMAB
     Indication: BREAST CANCER
     Dosage: CYCLE 1, LODIANG DOSE: 8MG/KG IV OVER 90 MIN ON DAY 1
     Route: 042
     Dates: start: 20150104
  3. PERTUZUMAB [Suspect]
     Active Substance: PERTUZUMAB
     Indication: BREAST CANCER
     Dosage: CYCLE 1, LOADING DOSE: PERTUZUMAB: 840MG IV OVER 60 MIN ON DAY 1
     Route: 042
     Dates: start: 20150104
  4. TRASTUZUMAB [Suspect]
     Active Substance: TRASTUZUMAB
     Dosage: CYCLE 2-6, MAINTAINANCE DOSE: 6MG/KG IV OVER 30-60 MIN ON DAY 1 Q3WEEKS (IT IS RECOMMENDED THAT ADJU
     Route: 042
  5. DOCETAXEL. [Suspect]
     Active Substance: DOCETAXEL
     Indication: BREAST CANCER
     Dosage: CYCLE 1-6: 75MG/M2 IV OVER 60 MIN ON DAY 1 Q3 WEEKS, TOTAL DOSE ADMINISTERED: 130 MG?LAST ADMINISTER
     Route: 042
  6. CARBOPLATIN. [Suspect]
     Active Substance: CARBOPLATIN
     Indication: BREAST CANCER
     Dosage: CYCLE 1-6: AUC 6 MG/ML/MIN IV OVER 30-60 MIN ON DAY 1 Q3 WEEKS, TOTAL DOSE ADMINISTERED: 800 MG?LAST
     Route: 042

REACTIONS (1)
  - Lung infection [Recovered/Resolved with Sequelae]

NARRATIVE: CASE EVENT DATE: 20150714
